FAERS Safety Report 5625693-2 (Version None)
Quarter: 2008Q1

REPORT INFORMATION
  Report Type: 
  Country: None (occurrence: None)
  Receive Date: 20080207
  Receipt Date: 20080207
  Transmission Date: 20080703
  Serious: No
  Sender: FDA-Public Use
  Company Number: None

PATIENT
  Age: 35 Year
  Sex: Male
  Weight: 98.5 kg

DRUGS (1)
  1. RAPAMYCIN 1 MG WYETH [Suspect]
     Indication: IMMUNOSUPPRESSION
     Dosage: 8 MG DAILY PO
     Route: 048
     Dates: start: 20070427, end: 20070618

REACTIONS (1)
  - STOMATITIS [None]
